FAERS Safety Report 10971569 (Version 3)
Quarter: 2016Q3

REPORT INFORMATION
  Report Type: Spontaneous
  Country: US (occurrence: US)
  Receive Date: 20150331
  Receipt Date: 20160701
  Transmission Date: 20161109
  Serious: Yes (Disabling, Other)
  Sender: FDA-Public Use
  Company Number: US-009507513-1503USA014205

PATIENT
  Sex: Male
  Weight: 92.63 kg

DRUGS (2)
  1. PROPECIA [Suspect]
     Active Substance: FINASTERIDE
     Indication: ANDROGENETIC ALOPECIA
     Dosage: 1 MG, QD
     Route: 048
     Dates: start: 1998, end: 200911
  2. PROPECIA [Suspect]
     Active Substance: FINASTERIDE
     Indication: ALOPECIA

REACTIONS (20)
  - Sexual dysfunction [Not Recovered/Not Resolved]
  - Depression [Not Recovered/Not Resolved]
  - Asthenia [Unknown]
  - Hepatitis C [Unknown]
  - Erectile dysfunction [Unknown]
  - Libido decreased [Not Recovered/Not Resolved]
  - Hypercholesterolaemia [Unknown]
  - Muscle spasms [Unknown]
  - Semen analysis abnormal [Unknown]
  - Cardiac murmur [Unknown]
  - Rash [Unknown]
  - Pruritus [Unknown]
  - Osteoarthritis [Unknown]
  - Limb operation [Unknown]
  - Cognitive disorder [Not Recovered/Not Resolved]
  - Feeling abnormal [Unknown]
  - Sciatica [Not Recovered/Not Resolved]
  - Semen volume decreased [Unknown]
  - Testicular pain [Unknown]
  - Anxiety [Not Recovered/Not Resolved]

NARRATIVE: CASE EVENT DATE: 2001
